FAERS Safety Report 4716853-3 (Version None)
Quarter: 2005Q3

REPORT INFORMATION
  Report Type: 
  Country: None (occurrence: None)
  Receive Date: 20050714
  Receipt Date: 20050629
  Transmission Date: 20060218
  Serious: Yes (Other)
  Sender: FDA-Public Use
  Company Number: 182930

PATIENT
  Age: 41 Year
  Sex: Female

DRUGS (1)
  1. AVONEX [Suspect]
     Indication: MULTIPLE SCLEROSIS
     Dosage: 30 UG;QW;IM
     Route: 030
     Dates: start: 20030901, end: 20031008

REACTIONS (7)
  - AUTOIMMUNE HEPATITIS [None]
  - CYTOLYTIC HEPATITIS [None]
  - DISEASE RECURRENCE [None]
  - INFLUENZA LIKE ILLNESS [None]
  - LEUKOPENIA [None]
  - LIVER DISORDER [None]
  - LYMPHOPENIA [None]
